FAERS Safety Report 8386913-7 (Version None)
Quarter: 2012Q2

REPORT INFORMATION
  Report Type: 
  Country: None (occurrence: None)
  Receive Date: 20120525
  Receipt Date: 20120515
  Transmission Date: 20120825
  Serious: Yes (Other)
  Sender: FDA-Public Use
  Company Number: CA-JNJFOC-20120514261

PATIENT
  Sex: Female
  Weight: 63 kg

DRUGS (2)
  1. BENADRYL [Concomitant]
     Route: 042
  2. REMICADE [Suspect]
     Indication: COLITIS ULCERATIVE
     Route: 042
     Dates: start: 20090904

REACTIONS (4)
  - INFUSION RELATED REACTION [None]
  - ERYTHEMA [None]
  - PARAESTHESIA ORAL [None]
  - CHEST DISCOMFORT [None]
